FAERS Safety Report 10861324 (Version 1)
Quarter: 2015Q1

REPORT INFORMATION
  Report Type: Spontaneous
  Country: FR (occurrence: FR)
  Receive Date: 20150224
  Receipt Date: 20150224
  Transmission Date: 20150721
  Serious: Yes (Hospitalization)
  Sender: FDA-Public Use
  Company Number: FR-JNJFOC-20150214050

PATIENT
  Age: 40 Year
  Sex: Male

DRUGS (24)
  1. IXPRIM [Suspect]
     Active Substance: ACETAMINOPHEN\TRAMADOL HYDROCHLORIDE
     Indication: NEURALGIA
     Route: 048
     Dates: start: 20140807
  2. LUMIRELAX [Concomitant]
     Active Substance: METHOCARBAMOL
     Indication: NECK PAIN
     Route: 065
     Dates: start: 201407
  3. CORTICOSTEROIDS [Concomitant]
     Active Substance: CORTICOSTEROID NOS
     Indication: NEURALGIA
     Route: 048
     Dates: start: 201403
  4. LUMIRELAX [Concomitant]
     Active Substance: METHOCARBAMOL
     Indication: BACK PAIN
     Route: 065
     Dates: start: 20140807
  5. LUMIRELAX [Concomitant]
     Active Substance: METHOCARBAMOL
     Indication: NEURALGIA
     Route: 065
     Dates: start: 201407
  6. PROFENID [Concomitant]
     Active Substance: KETOPROFEN
     Indication: BACK PAIN
     Route: 048
     Dates: start: 20140807
  7. PROFENID [Concomitant]
     Active Substance: KETOPROFEN
     Indication: NEURALGIA
     Route: 048
     Dates: start: 20140902
  8. PROFENID [Concomitant]
     Active Substance: KETOPROFEN
     Indication: NEURALGIA
     Route: 048
     Dates: start: 201407
  9. LUMIRELAX [Concomitant]
     Active Substance: METHOCARBAMOL
     Indication: BACK PAIN
     Route: 065
     Dates: start: 20140902
  10. PROFENID [Concomitant]
     Active Substance: KETOPROFEN
     Indication: NECK PAIN
     Route: 048
     Dates: start: 20140807
  11. PROFENID [Concomitant]
     Active Substance: KETOPROFEN
     Indication: BACK PAIN
     Route: 048
     Dates: start: 20140902
  12. DAFALGAN [Concomitant]
     Active Substance: ACETAMINOPHEN
     Indication: NEURALGIA
     Route: 048
     Dates: start: 20140902
  13. LUMIRELAX [Concomitant]
     Active Substance: METHOCARBAMOL
     Indication: NECK PAIN
     Route: 065
     Dates: start: 20140902
  14. LUMIRELAX [Concomitant]
     Active Substance: METHOCARBAMOL
     Indication: NEURALGIA
     Route: 065
     Dates: start: 20140902
  15. LYRICA [Suspect]
     Active Substance: PREGABALIN
     Indication: NEURALGIA
     Dosage: CUMULATIVE DOSE TO FIRST REACTION 12100 MG
     Route: 048
     Dates: start: 20141007, end: 20141127
  16. LYRICA [Suspect]
     Active Substance: PREGABALIN
     Indication: NEURALGIA
     Dosage: CUMULATIVE DOSE TO FIRST REACTION 12100 MG
     Route: 048
     Dates: start: 20140925, end: 20141106
  17. PROFENID [Concomitant]
     Active Substance: KETOPROFEN
     Indication: NEURALGIA
     Route: 048
     Dates: start: 20140807
  18. LUMIRELAX [Concomitant]
     Active Substance: METHOCARBAMOL
     Indication: NEURALGIA
     Route: 065
     Dates: start: 20140807
  19. CORTICOSTEROIDS [Concomitant]
     Active Substance: CORTICOSTEROID NOS
     Indication: NEURALGIA
     Route: 048
     Dates: start: 20140807
  20. PROFENID [Concomitant]
     Active Substance: KETOPROFEN
     Indication: NECK PAIN
     Route: 048
     Dates: start: 201407
  21. PROFENID [Concomitant]
     Active Substance: KETOPROFEN
     Indication: NECK PAIN
     Route: 048
     Dates: start: 20140902
  22. PROFENID [Concomitant]
     Active Substance: KETOPROFEN
     Indication: BACK PAIN
     Route: 048
     Dates: start: 201407
  23. LUMIRELAX [Concomitant]
     Active Substance: METHOCARBAMOL
     Indication: NECK PAIN
     Route: 065
     Dates: start: 20140807
  24. LUMIRELAX [Concomitant]
     Active Substance: METHOCARBAMOL
     Indication: BACK PAIN
     Route: 065
     Dates: start: 201407

REACTIONS (1)
  - Interstitial lung disease [Not Recovered/Not Resolved]

NARRATIVE: CASE EVENT DATE: 20141127
